FAERS Safety Report 5387297-9 (Version None)
Quarter: 2007Q3

REPORT INFORMATION
  Report Type: 
  Country: None (occurrence: None)
  Receive Date: 20070716
  Receipt Date: 20070704
  Transmission Date: 20080115
  Serious: Yes (Other)
  Sender: FDA-Public Use
  Company Number: PHBS2007NL11526

PATIENT
  Age: 5 Year
  Sex: Female

DRUGS (2)
  1. METHYLPHENIDATE HCL [Suspect]
     Indication: ATTENTION DEFICIT/HYPERACTIVITY DISORDER
     Dosage: 5 MG, BID
     Route: 065
  2. AMOXICILLIN [Suspect]
     Indication: OTITIS EXTERNA
     Dosage: 4 ML, TID
     Route: 065

REACTIONS (3)
  - CRYING [None]
  - DISORIENTATION [None]
  - HYPERHIDROSIS [None]
